FAERS Safety Report 9120043 (Version 1)
Quarter: 2013Q1

REPORT INFORMATION
  Report Type: Spontaneous
  Country: DK (occurrence: DK)
  Receive Date: 20130226
  Receipt Date: 20130226
  Transmission Date: 20140127
  Serious: Yes (Other)
  Sender: FDA-Public Use
  Company Number: DK-TEVA-385106ISR

PATIENT
  Age: 34 Year
  Sex: Female
  Weight: 62 kg

DRUGS (19)
  1. VINORELBINE [Suspect]
     Indication: PRODUCT USED FOR UNKNOWN INDICATION
     Route: 065
     Dates: start: 20090730
  2. TAXOL [Suspect]
     Indication: PRODUCT USED FOR UNKNOWN INDICATION
     Route: 065
     Dates: start: 20090910
  3. EPIRUBICIN [Suspect]
     Indication: PRODUCT USED FOR UNKNOWN INDICATION
     Route: 065
     Dates: start: 200609
  4. HERCEPTIN [Suspect]
     Indication: PRODUCT USED FOR UNKNOWN INDICATION
     Route: 065
     Dates: start: 200609
  5. HERCEPTIN [Suspect]
     Route: 065
     Dates: start: 20090730
  6. HERCEPTIN [Suspect]
     Route: 065
     Dates: start: 20090910, end: 20120214
  7. HERCEPTIN [Suspect]
     Route: 065
     Dates: start: 201202, end: 20120424
  8. HERCEPTIN [Suspect]
     Route: 065
     Dates: start: 20120425
  9. XELODA [Suspect]
     Indication: PRODUCT USED FOR UNKNOWN INDICATION
     Route: 065
     Dates: start: 20100614, end: 20120214
  10. ZOMETA [Suspect]
     Indication: PRODUCT USED FOR UNKNOWN INDICATION
     Route: 065
     Dates: start: 20090730
  11. ZOMETA [Suspect]
     Route: 065
     Dates: start: 20090910
  12. ZOMETA [Suspect]
     Route: 065
     Dates: start: 20100614, end: 20120214
  13. ZOMETA [Suspect]
     Route: 065
     Dates: start: 201202, end: 20120424
  14. ZOMETA [Suspect]
     Route: 065
     Dates: start: 20120425
  15. LAPATINIB [Suspect]
     Indication: PRODUCT USED FOR UNKNOWN INDICATION
     Route: 065
     Dates: start: 20100614, end: 20120214
  16. GEMZAR [Suspect]
     Indication: PRODUCT USED FOR UNKNOWN INDICATION
     Route: 065
     Dates: start: 201202, end: 20120424
  17. HALAVEN [Suspect]
     Indication: PRODUCT USED FOR UNKNOWN INDICATION
     Route: 065
     Dates: start: 20120425
  18. FLUOROURACIL [Suspect]
     Indication: PRODUCT USED FOR UNKNOWN INDICATION
     Route: 065
     Dates: start: 200609
  19. CYCLOPHOSPHAMIDE [Suspect]
     Indication: PRODUCT USED FOR UNKNOWN INDICATION
     Route: 065
     Dates: start: 200609

REACTIONS (6)
  - Disease progression [Recovering/Resolving]
  - Metastases to liver [Not Recovered/Not Resolved]
  - Metastases to bone [Unknown]
  - Metastases to central nervous system [Not Recovered/Not Resolved]
  - Metastases to the mediastinum [Not Recovered/Not Resolved]
  - Metastases to spine [Unknown]
